FAERS Safety Report 8544671-7 (Version None)
Quarter: 2012Q3

REPORT INFORMATION
  Report Type: 
  Country: None (occurrence: None)
  Receive Date: 20120717
  Receipt Date: 20120409
  Transmission Date: 20120928
  Serious: Yes (Life-Threatening, Hospitalization)
  Sender: FDA-Public Use
  Company Number: 2012P1048647

PATIENT
  Age: 73 Year
  Sex: Male

DRUGS (11)
  1. CALCIUM ACETATE [Concomitant]
  2. INSULIN [Concomitant]
  3. ISOSORBRIDE DINITRATE [Concomitant]
  4. DILTIAZEM [Suspect]
     Dosage: 120 MG; QD
  5. SIMVASTATIN [Concomitant]
  6. FUROSEMIDE [Concomitant]
  7. HYDRALAZINE HCL [Concomitant]
  8. DIGOXIN [Suspect]
     Indication: EJECTION FRACTION DECREASED
     Dosage: 0.125 MG; QD;
  9. SPIRONOLACTONE [Concomitant]
  10. VALSARTAN [Concomitant]
  11. AMLODIPINE [Concomitant]

REACTIONS (12)
  - BUNDLE BRANCH BLOCK LEFT [None]
  - MENTAL STATUS CHANGES [None]
  - RENAL FAILURE [None]
  - RESPIRATORY FAILURE [None]
  - VENTRICULAR EXTRASYSTOLES [None]
  - ELECTROCARDIOGRAM PR PROLONGATION [None]
  - ATRIOVENTRICULAR BLOCK COMPLETE [None]
  - TOXICITY TO VARIOUS AGENTS [None]
  - VENTRICULAR HYPOKINESIA [None]
  - UNRESPONSIVE TO STIMULI [None]
  - PNEUMONIA [None]
  - BRADYCARDIA [None]
